APPROVED DRUG PRODUCT: ATOMOXETINE HYDROCHLORIDE
Active Ingredient: ATOMOXETINE HYDROCHLORIDE
Strength: EQ 40MG BASE
Dosage Form/Route: CAPSULE;ORAL
Application: A079022 | Product #004 | TE Code: AB
Applicant: TEVA PHARMACEUTICALS USA
Approved: May 30, 2017 | RLD: No | RS: No | Type: RX